FAERS Safety Report 9403640 (Version 3)
Quarter: 2013Q3

REPORT INFORMATION
  Report Type: Spontaneous
  Country: NL (occurrence: NL)
  Receive Date: 20130717
  Receipt Date: 20130801
  Transmission Date: 20140515
  Serious: Yes (Other)
  Sender: FDA-Public Use
  Company Number: NL-009507513-1307NLD005801

PATIENT
  Age: 28 Year
  Sex: Female

DRUGS (4)
  1. IMPLANON NXT [Suspect]
     Indication: MENSTRUATION IRREGULAR
     Dosage: TIMES PER 1 DF
     Route: 058
     Dates: start: 20130703, end: 20130710
  2. DIAZEPAM [Concomitant]
     Indication: EPILEPSY
     Dosage: 10 MG DAILY DOSE 10 MG
  3. RIVOTRIL [Concomitant]
     Indication: EPILEPSY
     Dosage: 0.5 MG, BID, 0.5 MG
  4. DEPAKINE [Concomitant]
     Indication: EPILEPSY
     Dosage: 0.5 DF, 2 TIMES PER ONE DAY
     Dates: start: 201305

REACTIONS (9)
  - Epilepsy [Recovering/Resolving]
  - Hypersensitivity [Recovered/Resolved]
  - Implant site pain [Recovering/Resolving]
  - Implant site pruritus [Recovering/Resolving]
  - Malaise [Recovering/Resolving]
  - Inflammation [Recovered/Resolved]
  - Implant site erythema [Recovering/Resolving]
  - Erythema [Recovered/Resolved]
  - Pyrexia [Recovered/Resolved]
